FAERS Safety Report 14129253 (Version 1)
Quarter: 2017Q4

REPORT INFORMATION
  Report Type: Report from Study
  Country: UA (occurrence: UA)
  Receive Date: 20171026
  Receipt Date: 20171026
  Transmission Date: 20180321
  Serious: Yes (Other)
  Sender: FDA-Public Use
  Company Number: UA-TEVA-817651ISR

PATIENT
  Age: 44 Year
  Sex: Female

DRUGS (1)
  1. VAZAR [Suspect]
     Active Substance: VALSARTAN

REACTIONS (1)
  - Angina pectoris [Unknown]
